FAERS Safety Report 20146285 (Version 5)
Quarter: 2022Q3

REPORT INFORMATION
  Report Type: Report from Study
  Country: JP (occurrence: JP)
  Receive Date: 20211203
  Receipt Date: 20220921
  Transmission Date: 20221027
  Serious: Yes (Death, Other)
  Sender: FDA-Public Use
  Company Number: JP-ONO-2021JP030165

PATIENT
  Age: 63 Year
  Sex: Female
  Weight: 62.1 kg

DRUGS (18)
  1. YERVOY [Suspect]
     Active Substance: IPILIMUMAB
     Indication: Non-small cell lung cancer recurrent
     Dosage: TOTAL NUMBER OF YERVOY COURSES, 3
     Route: 041
     Dates: start: 20201224, end: 20201224
  2. YERVOY [Suspect]
     Active Substance: IPILIMUMAB
     Dosage: THE 2ND COURSE OF YERVOY
     Route: 041
     Dates: start: 20210119, end: 20210119
  3. YERVOY [Suspect]
     Active Substance: IPILIMUMAB
     Dosage: MAINTENANCE THERAPY
     Route: 041
     Dates: start: 20210212, end: 20210212
  4. OPDIVO [Suspect]
     Active Substance: NIVOLUMAB
     Indication: Non-small cell lung cancer recurrent
     Dosage: TOTAL NUMBER OF ADMINISTRATION: 3
     Route: 041
     Dates: start: 20201224, end: 20210212
  5. OPDIVO [Suspect]
     Active Substance: NIVOLUMAB
  6. DOCETAXEL [Suspect]
     Active Substance: DOCETAXEL
     Indication: Non-small cell lung cancer recurrent
     Dosage: UNK
     Route: 065
     Dates: start: 20210331, end: 20210726
  7. DOCETAXEL [Suspect]
     Active Substance: DOCETAXEL
  8. DOCETAXEL [Suspect]
     Active Substance: DOCETAXEL
  9. RAMUCIRUMAB [Suspect]
     Active Substance: RAMUCIRUMAB
     Indication: Non-small cell lung cancer recurrent
     Dosage: UNK
     Route: 065
     Dates: start: 20210331, end: 20210726
  10. RAMUCIRUMAB [Suspect]
     Active Substance: RAMUCIRUMAB
  11. RAMUCIRUMAB [Suspect]
     Active Substance: RAMUCIRUMAB
  12. CISPLATIN [Concomitant]
     Active Substance: CISPLATIN
     Indication: Non-small cell lung cancer recurrent
     Dosage: UNK
     Route: 065
     Dates: start: 20201224, end: 20210119
  13. CISPLATIN [Concomitant]
     Active Substance: CISPLATIN
  14. CISPLATIN [Concomitant]
     Active Substance: CISPLATIN
  15. AMLODIPINE [Concomitant]
     Active Substance: AMLODIPINE BESYLATE
     Indication: Product used for unknown indication
     Dosage: 5 MG, EVERYDAY
     Route: 065
     Dates: end: 20210912
  16. NEXIUM [Concomitant]
     Active Substance: ESOMEPRAZOLE MAGNESIUM
     Indication: Product used for unknown indication
     Dosage: 10 MG, EVERYDAY
     Route: 065
  17. DEXTROMETHORPHAN HYDROBROMIDE [Concomitant]
     Active Substance: DEXTROMETHORPHAN HYDROBROMIDE
     Indication: Product used for unknown indication
     Dosage: 90 MG, EVERYDAY, HAS ALREADY BEEN DISCONTINUED BEFORE 26-MAR-2021.
     Route: 065
  18. PEMETREXED/ PEMETREXED SODIUM HYDRATE [Concomitant]
     Indication: Non-small cell lung cancer recurrent
     Dosage: UNK
     Route: 065
     Dates: start: 20201224, end: 20210119

REACTIONS (3)
  - Interstitial lung disease [Recovering/Resolving]
  - Death [Fatal]
  - Non-small cell lung cancer [Unknown]

NARRATIVE: CASE EVENT DATE: 20210806
